FAERS Safety Report 11815097 (Version 1)
Quarter: 2015Q4

REPORT INFORMATION
  Report Type: Spontaneous
  Country: US (occurrence: US)
  Receive Date: 20151209
  Receipt Date: 20151209
  Transmission Date: 20160305
  Serious: No
  Sender: FDA-Public Use
  Company Number: US-SA-2015SA166443

PATIENT
  Age: 63 Year
  Sex: Female

DRUGS (5)
  1. TOUJEO [Suspect]
     Active Substance: INSULIN GLARGINE
     Indication: DIABETES MELLITUS
     Dosage: DOSE: SLIDING SCALE
     Route: 065
     Dates: start: 20151016
  2. AFREZZA [Concomitant]
     Active Substance: INSULIN HUMAN
     Dosage: START DATE:ABOUT FIVE WEEKS AGO DOSE:4 UNIT(S)
     Dates: start: 20151016
  3. TOUJEO [Suspect]
     Active Substance: INSULIN GLARGINE
     Indication: DIABETES MELLITUS
     Dosage: DOSE: SLIDING SCALE
     Route: 065
     Dates: start: 20151016
  4. AFREZZA [Concomitant]
     Active Substance: INSULIN HUMAN
     Dosage: START DATE:ABOUT FIVE WEEKS AGO DOSE:4 UNIT(S)
     Dates: start: 20151016
  5. SOLOSTAR [Concomitant]
     Active Substance: DEVICE
     Dates: start: 20151016

REACTIONS (4)
  - Lip swelling [Recovering/Resolving]
  - Eyelid oedema [Recovering/Resolving]
  - Blood glucose increased [Unknown]
  - Nasal congestion [Recovering/Resolving]

NARRATIVE: CASE EVENT DATE: 20151017
